FAERS Safety Report 6510477-3 (Version None)
Quarter: 2009Q4

REPORT INFORMATION
  Report Type: 
  Country: None (occurrence: None)
  Receive Date: 20091222
  Receipt Date: 20091216
  Transmission Date: 20100525
  Serious: Yes (Hospitalization)
  Sender: FDA-Public Use
  Company Number: JP-BAYER-200915137BYL

PATIENT
  Age: 26 Year
  Sex: Female

DRUGS (1)
  1. AVELOX [Suspect]
     Indication: NASOPHARYNGITIS
     Dosage: UNIT DOSE: 400 MG
     Route: 048
     Dates: start: 20091126, end: 20091130

REACTIONS (1)
  - EOSINOPHILIC PNEUMONIA [None]
